FAERS Safety Report 12239053 (Version 7)
Quarter: 2020Q2

REPORT INFORMATION
  Report Type: Spontaneous
  Country: US (occurrence: US)
  Receive Date: 20160405
  Receipt Date: 20200428
  Transmission Date: 20200713
  Serious: Yes (Hospitalization, Other)
  Sender: FDA-Public Use
  Company Number: US-ACTELION PHARMACEUTICALS US, INC.-A-US2016-133862

PATIENT
  Age: 4 Year
  Sex: Male

DRUGS (12)
  1. POLY-VI-SOL [Concomitant]
     Active Substance: VITAMINS
  2. POLYETHYLENE GLYCOL [Concomitant]
     Active Substance: POLYETHYLENE GLYCOLS
  3. RANITIDINE. [Concomitant]
     Active Substance: RANITIDINE
  4. SENNA [Concomitant]
     Active Substance: SENNA LEAF\SENNOSIDES\SENNOSIDES A AND B
  5. NYSTATIN. [Concomitant]
     Active Substance: NYSTATIN
  6. WARFARIN [Concomitant]
     Active Substance: WARFARIN
  7. BUMETANIDE. [Concomitant]
     Active Substance: BUMETANIDE
  8. CALCIUM CARBONATE. [Concomitant]
     Active Substance: CALCIUM CARBONATE
  9. TRACLEER [Suspect]
     Active Substance: BOSENTAN
     Indication: PULMONARY ARTERIAL HYPERTENSION
     Dosage: 32 MG, BID
     Route: 048
  10. ASPIRIN. [Concomitant]
     Active Substance: ASPIRIN
  11. CALCITRIOL. [Concomitant]
     Active Substance: CALCITRIOL
  12. DIURIL [Concomitant]
     Active Substance: CHLOROTHIAZIDE

REACTIONS (10)
  - Vomiting [Unknown]
  - Product dose omission [Unknown]
  - Cardiac operation [Unknown]
  - Gastrointestinal tube insertion [Unknown]
  - Abnormal behaviour [Unknown]
  - Gastroenteritis [Recovered/Resolved]
  - Cough [Unknown]
  - Malaise [Unknown]
  - Pneumonia [Recovered/Resolved]
  - Influenza [Unknown]

NARRATIVE: CASE EVENT DATE: 20191202
